FAERS Safety Report 7440893-7 (Version None)
Quarter: 2011Q2

REPORT INFORMATION
  Report Type: 
  Country: None (occurrence: None)
  Receive Date: 20110427
  Receipt Date: 20110421
  Transmission Date: 20111010
  Serious: Yes (Death, Hospitalization, Other)
  Sender: FDA-Public Use
  Company Number: JP-CEPHALON-2011000670

PATIENT
  Age: 87 Year
  Sex: Female
  Weight: 38 kg

DRUGS (10)
  1. BENDAMUSTINE HCL [Suspect]
     Indication: NON-HODGKIN'S LYMPHOMA RECURRENT
     Route: 042
     Dates: start: 20110118, end: 20110119
  2. BETAMETHASONE [Suspect]
     Dates: end: 20110124
  3. BETAMETHASONE [Concomitant]
     Dates: end: 20110124
  4. BIAPENEM [Concomitant]
     Dates: end: 20110124
  5. MICAFUNGIN [Concomitant]
     Dates: end: 20110124
  6. LANSOPRAZOLE [Concomitant]
     Dates: end: 20110124
  7. ACICLOVIR [Concomitant]
     Dates: end: 20110124
  8. RITUXIMAB [Concomitant]
     Indication: NON-HODGKIN'S LYMPHOMA RECURRENT
     Dates: start: 20110107, end: 20110107
  9. AZASETRON HYDROCHLORIDE [Concomitant]
     Dates: start: 20110118, end: 20110119
  10. GABEXATE MESILATE [Concomitant]
     Dates: start: 20110118, end: 20110124

REACTIONS (9)
  - HAEMOGLOBIN DECREASED [None]
  - NON-HODGKIN'S LYMPHOMA [None]
  - C-REACTIVE PROTEIN INCREASED [None]
  - TUMOUR LYSIS SYNDROME [None]
  - NEUTROPHIL COUNT DECREASED [None]
  - PLATELET COUNT DECREASED [None]
  - LYMPHOCYTE COUNT DECREASED [None]
  - RED BLOOD CELL COUNT DECREASED [None]
  - HAEMATOCRIT DECREASED [None]
